FAERS Safety Report 8785854 (Version 4)
Quarter: 2013Q2

REPORT INFORMATION
  Report Type: Spontaneous
  Country: US (occurrence: US)
  Receive Date: 20120914
  Receipt Date: 20130418
  Transmission Date: 20140414
  Serious: Yes (Hospitalization, Other)
  Sender: FDA-Public Use
  Company Number: US-009507513-1201USA03044

PATIENT
  Sex: Female

DRUGS (2)
  1. FOSAMAX [Suspect]
     Indication: OSTEOPOROSIS
     Dosage: 70 MG, QW
     Route: 048
     Dates: start: 20010506, end: 200805
  2. ALENDRONATE SODIUM [Suspect]
     Indication: OSTEOPOROSIS
     Dosage: 70 MG, QW
     Route: 048
     Dates: start: 200805, end: 200901

REACTIONS (7)
  - Femur fracture [Unknown]
  - Open reduction of fracture [Unknown]
  - Haemorrhagic anaemia [Unknown]
  - Joint dislocation [Unknown]
  - Rib fracture [Recovered/Resolved]
  - Atelectasis [Unknown]
  - Pulmonary fibrosis [Unknown]
